FAERS Safety Report 5086256-3 (Version None)
Quarter: 2006Q3

REPORT INFORMATION
  Report Type: 
  Country: None (occurrence: None)
  Receive Date: 20060703
  Receipt Date: 20060221
  Transmission Date: 20061208
  Serious: No
  Sender: FDA-Public Use
  Company Number: 2006S1001548

PATIENT
  Age: 38 Year
  Sex: Female

DRUGS (4)
  1. CLOZAPINE [Suspect]
     Indication: PSYCHOTIC DISORDER
     Dosage: 100 MG;HS;ORAL
     Route: 048
     Dates: start: 20060130
  2. ESCITALOPRAM [Concomitant]
  3. LORAZEPAM [Concomitant]
  4. CLARITHROMYCIN [Concomitant]

REACTIONS (1)
  - GRANULOCYTOPENIA [None]
